FAERS Safety Report 18445727 (Version 1)
Quarter: 2020Q4

REPORT INFORMATION
  Report Type: Spontaneous
  Country: CN (occurrence: CN)
  Receive Date: 20201030
  Receipt Date: 20201030
  Transmission Date: 20210114
  Serious: Yes (Death, Other)
  Sender: FDA-Public Use
  Company Number: CN-ELI_LILLY_AND_COMPANY-CN202010010708

PATIENT
  Age: 50 Year
  Sex: Male
  Weight: 66 kg

DRUGS (6)
  1. ALIMTA [Suspect]
     Active Substance: PEMETREXED DISODIUM
     Dosage: 500 MG, DAILY
     Route: 041
     Dates: start: 20201001, end: 20201001
  2. CARBOPLATIN. [Suspect]
     Active Substance: CARBOPLATIN
     Indication: LUNG NEOPLASM MALIGNANT
     Dosage: 400 MG, DAILY
     Route: 041
     Dates: start: 20201002, end: 20201002
  3. SODIUM CHLORIDE. [Concomitant]
     Active Substance: SODIUM CHLORIDE
     Indication: MEDICATION DILUTION
     Dosage: 250 ML, DAILY
     Route: 041
     Dates: start: 20200930, end: 20201001
  4. ALIMTA [Suspect]
     Active Substance: PEMETREXED DISODIUM
     Indication: LUNG NEOPLASM MALIGNANT
     Dosage: 300 MG, DAILY
     Route: 041
     Dates: start: 20201001, end: 20201001
  5. GLUCOSE [Concomitant]
     Active Substance: DEXTROSE
     Indication: MEDICATION DILUTION
     Dosage: 500 ML, DAILY
     Route: 041
     Dates: start: 20201002, end: 20201002
  6. RECOMBINANT HUMAN GRANULOCYTE COLONY STIMULAT [Concomitant]
     Indication: AGRANULOCYTOSIS
     Dosage: 6 ML, UNKNOWN
     Route: 065

REACTIONS (4)
  - Bone marrow failure [Fatal]
  - Pulmonary embolism [Fatal]
  - Lung neoplasm malignant [Fatal]
  - Off label use [Unknown]

NARRATIVE: CASE EVENT DATE: 20201011
